FAERS Safety Report 16573484 (Version 1)
Quarter: 2019Q3

REPORT INFORMATION
  Report Type: Spontaneous
  Country: US (occurrence: US)
  Receive Date: 20190715
  Receipt Date: 20190715
  Transmission Date: 20191004
  Serious: No
  Sender: FDA-Public Use
  Company Number: US-TEVA-2019-US-1077750

PATIENT
  Age: 62 Year
  Sex: Female

DRUGS (1)
  1. LIDOCAINE. [Suspect]
     Active Substance: LIDOCAINE
     Indication: ARTHRALGIA
     Dosage: FORM OF ADMIN: PATCH
     Route: 062

REACTIONS (2)
  - Dermatitis contact [Unknown]
  - Type IV hypersensitivity reaction [Unknown]
